FAERS Safety Report 10495277 (Version 3)
Quarter: 2014Q4

REPORT INFORMATION
  Report Type: Spontaneous
  Country: JP (occurrence: JP)
  Receive Date: 20141003
  Receipt Date: 20141017
  Transmission Date: 20150528
  Serious: Yes (Hospitalization, Other)
  Sender: FDA-Public Use
  Company Number: JP-PFIZER INC-2014269379

PATIENT
  Age: 58 Year
  Sex: Male

DRUGS (3)
  1. OPALMON [Concomitant]
     Active Substance: LIMAPROST
     Indication: HYPOAESTHESIA
     Dosage: 5 UG, DAILY
     Route: 048
     Dates: start: 20140819, end: 20140924
  2. LYRICA [Suspect]
     Active Substance: PREGABALIN
     Indication: HYPOAESTHESIA
     Dosage: 50 MG, DAILY
     Route: 048
     Dates: start: 20140729, end: 20140924
  3. METHYCOBAL [Concomitant]
     Active Substance: METHYLCOBALAMIN
     Indication: HYPOAESTHESIA
     Dosage: 1500 UG, DAILY
     Route: 048
     Dates: start: 20140719, end: 20140924

REACTIONS (30)
  - Neutrophil count increased [Unknown]
  - C-reactive protein increased [Unknown]
  - Platelet count increased [Unknown]
  - Aspartate aminotransferase increased [Unknown]
  - Blood urea increased [Unknown]
  - Glycosylated haemoglobin increased [Unknown]
  - Red blood cell count decreased [Unknown]
  - Tarsal tunnel syndrome [Unknown]
  - Gamma-glutamyltransferase increased [Unknown]
  - Blood albumin decreased [Unknown]
  - Blood chloride decreased [Unknown]
  - Blood uric acid increased [Unknown]
  - Monocyte count increased [Unknown]
  - Blood calcium decreased [Unknown]
  - Haematocrit decreased [Unknown]
  - Malaise [Recovered/Resolved]
  - Blood creatinine increased [Unknown]
  - Alanine aminotransferase increased [Unknown]
  - Blood alkaline phosphatase increased [Unknown]
  - Bilirubin conjugated increased [Unknown]
  - Protein total decreased [Unknown]
  - Glomerular filtration rate decreased [Unknown]
  - Blood creatine phosphokinase decreased [Unknown]
  - Blood glucose increased [Unknown]
  - Blood iron decreased [Unknown]
  - Haemoglobin decreased [Unknown]
  - Tri-iodothyronine free decreased [Unknown]
  - White blood cell count increased [Unknown]
  - Blood potassium increased [Unknown]
  - Blood sodium decreased [Unknown]

NARRATIVE: CASE EVENT DATE: 20140925
